FAERS Safety Report 11234826 (Version 1)
Quarter: 2015Q3

REPORT INFORMATION
  Report Type: Report from Study
  Country: MX (occurrence: MX)
  Receive Date: 20150702
  Receipt Date: 20150702
  Transmission Date: 20151125
  Serious: Yes (Death, Other)
  Sender: FDA-Public Use
  Company Number: MX-BRISTOL-MYERS SQUIBB COMPANY-BMS-2015-041886

PATIENT
  Sex: Female

DRUGS (1)
  1. DASATINIB [Suspect]
     Active Substance: DASATINIB
     Indication: CHRONIC MYELOID LEUKAEMIA
     Dosage: 1 DF, UNK
     Route: 065
     Dates: start: 20140624, end: 20150619

REACTIONS (4)
  - Death [Fatal]
  - Splenomegaly [Unknown]
  - Haematemesis [Unknown]
  - Oropharyngeal pain [Unknown]
